FAERS Safety Report 25876922 (Version 1)
Quarter: 2025Q4

REPORT INFORMATION
  Report Type: Spontaneous
  Country: IN (occurrence: IN)
  Receive Date: 20251003
  Receipt Date: 20251003
  Transmission Date: 20260118
  Serious: Yes (Hospitalization, Other)
  Sender: MARKSANS PHARMA LIMITED
  Company Number: IN-MARKSANS PHARMA LIMITED-MPL202500095

PATIENT

DRUGS (1)
  1. ACETAMINOPHEN [Suspect]
     Active Substance: ACETAMINOPHEN
     Indication: Product used for unknown indication
     Dosage: 15 GRAM, SINGLE  (APPROXIMATELY 278 MG/KG)
     Route: 048

REACTIONS (13)
  - Hepatotoxicity [Recovered/Resolved]
  - Bradycardia [Recovered/Resolved]
  - Atrioventricular block second degree [Recovered/Resolved]
  - Hypomagnesaemia [Recovered/Resolved]
  - Confusional state [Recovered/Resolved]
  - Toxicity to various agents [Recovered/Resolved]
  - Hypokalaemia [Recovered/Resolved]
  - Dizziness [Recovered/Resolved]
  - Anxiety [Recovered/Resolved]
  - Nausea [Recovered/Resolved]
  - Vomiting [Recovered/Resolved]
  - Abdominal pain upper [Recovered/Resolved]
  - Intentional overdose [Unknown]
